FAERS Safety Report 6611878-5 (Version None)
Quarter: 2010Q1

REPORT INFORMATION
  Report Type: 
  Country: None (occurrence: None)
  Receive Date: 20100226
  Receipt Date: 20100226
  Transmission Date: 20100710
  Serious: Yes (Life-Threatening)
  Sender: FDA-Public Use
  Company Number: None

PATIENT
  Age: 61 Year
  Sex: Male
  Weight: 105.9 kg

DRUGS (12)
  1. DOCETAXEL [Suspect]
     Indication: PROSTATE CANCER
     Dosage: DOCETAXEL 60 MG/M2 Q 3 WEEKS X 3 IV
     Route: 042
     Dates: start: 20090916, end: 20091028
  2. DOCETAXEL [Suspect]
     Indication: PROSTATE CANCER
     Dosage: DOCETAXEL 20 MG/M2 WEEKLY IV
     Route: 042
     Dates: start: 20091118, end: 20091223
  3. LUPRON [Concomitant]
  4. CASODEX [Concomitant]
  5. LUPRON [Concomitant]
  6. CASODEX [Concomitant]
  7. MS CONTIN [Concomitant]
  8. MORPHINE IMMEDIATE RELEASE SYRUP [Concomitant]
  9. MIRALAX [Concomitant]
  10. FLOMAX [Concomitant]
  11. PYRIMIDINE [Concomitant]
  12. DULCOLAX [Concomitant]

REACTIONS (5)
  - FATIGUE [None]
  - INTERSTITIAL LUNG DISEASE [None]
  - OVERDOSE [None]
  - PAIN [None]
  - UNRESPONSIVE TO STIMULI [None]
